FAERS Safety Report 6402648-1 (Version None)
Quarter: 2009Q4

REPORT INFORMATION
  Report Type: 
  Country: None (occurrence: None)
  Receive Date: 20091009
  Receipt Date: 20091001
  Transmission Date: 20100525
  Serious: Yes (Hospitalization)
  Sender: FDA-Public Use
  Company Number: ADR36762009

PATIENT
  Age: 35 Year
  Sex: Male

DRUGS (1)
  1. RISPERIDONE [Suspect]
     Indication: SCHIZOPHRENIA
     Dosage: ORAL
     Route: 048
     Dates: start: 20090727, end: 20090820

REACTIONS (4)
  - DYSPHAGIA [None]
  - DYSTONIA [None]
  - MUSCLE RIGIDITY [None]
  - TRISMUS [None]
